FAERS Safety Report 25746443 (Version 1)
Quarter: 2025Q3

REPORT INFORMATION
  Report Type: Report from Study
  Country: US (occurrence: US)
  Receive Date: 20250901
  Receipt Date: 20250901
  Transmission Date: 20251021
  Serious: No
  Sender: SUNOVION
  Company Number: US-SUMITOMO PHARMA SWITZERLAND GMBH-2025SPA010902

PATIENT
  Age: 89 Year
  Sex: Male

DRUGS (15)
  1. ORGOVYX [Suspect]
     Active Substance: RELUGOLIX
     Indication: Prostate cancer
     Route: 048
     Dates: start: 20250604, end: 20250604
  2. ORGOVYX [Suspect]
     Active Substance: RELUGOLIX
     Route: 048
  3. AMLODIPINE [Concomitant]
     Active Substance: AMLODIPINE BESYLATE
  4. ATORVASTATIN [Concomitant]
     Active Substance: ATORVASTATIN
  5. ELIQUIS [Concomitant]
     Active Substance: APIXABAN
  6. FINASTERIDE [Concomitant]
     Active Substance: FINASTERIDE
  7. HYDRALAZINE [Concomitant]
     Active Substance: HYDRALAZINE HYDROCHLORIDE
  8. ISOSORBIDE MONONITRATE [Concomitant]
     Active Substance: ISOSORBIDE MONONITRATE
  9. LACTULOSE [Concomitant]
     Active Substance: LACTULOSE
  10. MIRTAZAPINE [Concomitant]
     Active Substance: MIRTAZAPINE
  11. NUBEQA [Concomitant]
     Active Substance: DAROLUTAMIDE
  12. QUETIAPINE [Concomitant]
     Active Substance: QUETIAPINE
  13. RANOLAZINE [Concomitant]
     Active Substance: RANOLAZINE
  14. SERTRALINE [Concomitant]
     Active Substance: SERTRALINE HYDROCHLORIDE
  15. TAMSULOSIN [Concomitant]
     Active Substance: TAMSULOSIN

REACTIONS (1)
  - Stomatitis [Unknown]
